FAERS Safety Report 4590466-9 (Version None)
Quarter: 2005Q1

REPORT INFORMATION
  Report Type: 
  Country: None (occurrence: None)
  Receive Date: 20050224
  Receipt Date: 20050214
  Transmission Date: 20050727
  Serious: Yes (Other)
  Sender: FDA-Public Use
  Company Number: US-BRISTOL-MYERS SQUIBB COMPANY-12875050

PATIENT
  Age: 54 Year
  Sex: Female
  Weight: 56 kg

DRUGS (3)
  1. MEGESTROL ACETATE [Suspect]
     Indication: INCREASED APPETITE
  2. PHENYTOIN [Concomitant]
  3. WARFARIN SODIUM [Concomitant]

REACTIONS (1)
  - OSTEOPOROSIS [None]
